FAERS Safety Report 14578778 (Version 3)
Quarter: 2018Q1

REPORT INFORMATION
  Report Type: Report from Study
  Country: IT (occurrence: IT)
  Receive Date: 20180227
  Receipt Date: 20180330
  Transmission Date: 20180509
  Serious: Yes (Other)
  Sender: FDA-Public Use
  Company Number: IT-B.I. PHARMACEUTICALS,INC./RIDGEFIELD-2018-12-000596

PATIENT
  Age: 69 Year
  Sex: Female
  Weight: 52 kg

DRUGS (1)
  1. GILOTRIF [Suspect]
     Active Substance: AFATINIB
     Indication: LUNG NEOPLASM MALIGNANT
     Route: 065
     Dates: start: 20161216, end: 20170119

REACTIONS (4)
  - Tongue geographic [Recovering/Resolving]
  - Epistaxis [Recovering/Resolving]
  - Eczema [Recovering/Resolving]
  - Multiple injuries [Recovering/Resolving]

NARRATIVE: CASE EVENT DATE: 20170110
